FAERS Safety Report 6621511-4 (Version None)
Quarter: 2010Q1

REPORT INFORMATION
  Report Type: 
  Country: None (occurrence: None)
  Receive Date: 20100223
  Receipt Date: 20091223
  Transmission Date: 20100710
  Serious: Yes (Other)
  Sender: FDA-Public Use
  Company Number: 003875

PATIENT
  Sex: Female
  Weight: 118.1 kg

DRUGS (5)
  1. CIMZIA [Suspect]
     Indication: CROHN'S DISEASE
     Dosage: (400 MG 1X/MONTH SUBCUTANEOUS)
     Route: 058
     Dates: start: 20091212
  2. INSULIN [Concomitant]
  3. PREDNISONE [Concomitant]
  4. OXYGEN [Concomitant]
  5. KLONOPIN [Concomitant]

REACTIONS (1)
  - SINUSITIS [None]
